FAERS Safety Report 16351155 (Version 1)
Quarter: 2019Q2

REPORT INFORMATION
  Report Type: Spontaneous
  Country: FR (occurrence: FR)
  Receive Date: 20190524
  Receipt Date: 20190524
  Transmission Date: 20190711
  Serious: Yes (Life-Threatening)
  Sender: FDA-Public Use
  Company Number: FR-ADIENNEP-2019AD000272

PATIENT
  Age: 27 Year
  Sex: Female
  Weight: 104 kg

DRUGS (21)
  1. PRIMPERAN [Concomitant]
     Active Substance: METOCLOPRAMIDE HYDROCHLORIDE
  2. SMECTA [Concomitant]
     Active Substance: MONTMORILLONITE
  3. VALACICLOVIR [Concomitant]
     Active Substance: VALACYCLOVIR HYDROCHLORIDE
  4. NOMEGESTROL [Concomitant]
     Active Substance: NOMEGESTROL
  5. ENDOXAN [Suspect]
     Active Substance: CYCLOPHOSPHAMIDE
     Indication: STEM CELL TRANSPLANT
     Dosage: 5400 MG DAILY
     Route: 042
     Dates: start: 20190324, end: 20190325
  6. ZARZIO [Concomitant]
     Active Substance: FILGRASTIM
  7. ZOPICLONE [Concomitant]
     Active Substance: ZOPICLONE
  8. CELLCEPT [Concomitant]
     Active Substance: MYCOPHENOLATE MOFETIL\MYCOPHENOLATE MOFETIL HYDROCHLORIDE
  9. DIFICLIR [Concomitant]
     Active Substance: FIDAXOMICIN
  10. ULTRAPROCT [Concomitant]
  11. PANTOPRAZOLE [Concomitant]
     Active Substance: PANTOPRAZOLE
  12. VORICONAZOLE. [Concomitant]
     Active Substance: VORICONAZOLE
  13. BUSILVEX [Suspect]
     Active Substance: BUSULFAN
     Indication: STEM CELL TRANSPLANT
     Dosage: 228 MG DAILY
     Route: 042
     Dates: start: 20190316, end: 20190317
  14. TEPADINA [Suspect]
     Active Substance: THIOTEPA
     Indication: STEM CELL TRANSPLANT
     Dosage: IN TOTAL
     Route: 042
     Dates: start: 20190315, end: 20190315
  15. FLAGYL [Concomitant]
     Active Substance: METRONIDAZOLE\METRONIDAZOLE HYDROCHLORIDE
  16. CICLOSPORIN [Concomitant]
     Active Substance: CYCLOSPORINE
  17. VFEND [Concomitant]
     Active Substance: VORICONAZOLE
  18. FLUDARABINE PHOSPHATE. [Suspect]
     Active Substance: FLUDARABINE PHOSPHATE
     Indication: STEM CELL TRANSPLANT
     Dosage: 80 MG DAILY
     Route: 042
     Dates: start: 20190316, end: 20190319
  19. MESNA. [Concomitant]
     Active Substance: MESNA
  20. ONDANSETRON [Concomitant]
     Active Substance: ONDANSETRON
  21. CHOLURSO [Concomitant]
     Active Substance: URSODIOL

REACTIONS (4)
  - Pancytopenia [Recovered/Resolved]
  - Lung infection [Recovering/Resolving]
  - Sinusitis [Recovering/Resolving]
  - Cellulitis [Recovering/Resolving]

NARRATIVE: CASE EVENT DATE: 20190325
